FAERS Safety Report 9103731 (Version 1)
Quarter: 2013Q1

REPORT INFORMATION
  Report Type: Spontaneous
  Country: JP (occurrence: JP)
  Receive Date: 20130219
  Receipt Date: 20130219
  Transmission Date: 20140127
  Serious: Yes (Death)
  Sender: FDA-Public Use
  Company Number: JP-PFIZER INC-2013058338

PATIENT
  Age: 28 Year
  Sex: Female
  Weight: 57 kg

DRUGS (1)
  1. ZITHROMAC [Suspect]
     Indication: PNEUMONIA MYCOPLASMAL
     Dosage: UNK
     Route: 048

REACTIONS (1)
  - Long QT syndrome [Fatal]
